FAERS Safety Report 19072191 (Version 1)
Quarter: 2021Q1

REPORT INFORMATION
  Report Type: Spontaneous
  Country: US (occurrence: US)
  Receive Date: 20210326
  Receipt Date: 20210326
  Transmission Date: 20210420
  Serious: Yes (Hospitalization)
  Sender: FDA-Public Use
  Company Number: None

PATIENT
  Age: 70 Year
  Sex: Male
  Weight: 97 kg

DRUGS (2)
  1. DULAGLUTIDE (DULAGLUTIDE 1.5MG/0.5ML INJ,SOLN,PEN) [Suspect]
     Active Substance: DULAGLUTIDE
     Indication: DIABETES MELLITUS
     Route: 058
     Dates: start: 20200928, end: 20210315
  2. METFORMIN (METFORMIN HCL 1000MG TAB) [Suspect]
     Active Substance: METFORMIN HYDROCHLORIDE
     Indication: DIABETES MELLITUS
     Route: 048
     Dates: start: 20100622, end: 20210315

REACTIONS (2)
  - Pancreatitis [None]
  - Blood triglycerides increased [None]

NARRATIVE: CASE EVENT DATE: 20210315
